FAERS Safety Report 12189365 (Version 1)
Quarter: 2016Q1

REPORT INFORMATION
  Report Type: Spontaneous
  Country: CA (occurrence: CA)
  Receive Date: 20160317
  Receipt Date: 20160317
  Transmission Date: 20160526
  Serious: Yes (Death, Other)
  Sender: FDA-Public Use
  Company Number: CA-AMGEN-CANSP2016031595

PATIENT
  Age: 83 Year
  Sex: Male

DRUGS (11)
  1. GLYBURIDE. [Suspect]
     Active Substance: GLYBURIDE
     Indication: DIABETES MELLITUS
     Dosage: 10 MG, BID
     Route: 048
  2. METOPROLOL. [Suspect]
     Active Substance: METOPROLOL
     Indication: HYPERTENSION
     Dosage: 75.0 MG, UNK
     Route: 048
  3. ALLOPURINOL. [Concomitant]
     Active Substance: ALLOPURINOL
     Route: 048
  4. TAMSULOSIN [Concomitant]
     Active Substance: TAMSULOSIN
  5. INSULIN [Suspect]
     Active Substance: INSULIN NOS
     Indication: DIABETES MELLITUS
     Dosage: 25.0 UNIT, QD
     Route: 065
  6. AMLODIPINE [Concomitant]
     Active Substance: AMLODIPINE BESYLATE
     Route: 048
  7. ARANESP [Suspect]
     Active Substance: DARBEPOETIN ALFA
     Indication: ANAEMIA
     Dosage: 100.0 MUG, Q2WK
     Route: 042
  8. ASPIRIN                            /00002701/ [Concomitant]
     Active Substance: ASPIRIN
  9. VITAMIN B12 [Concomitant]
     Active Substance: CYANOCOBALAMIN
  10. HYDROCHLOROTHIAZIDE. [Concomitant]
     Active Substance: HYDROCHLOROTHIAZIDE
     Route: 048
  11. PANTOPRAZOLE [Concomitant]
     Active Substance: PANTOPRAZOLE SODIUM

REACTIONS (2)
  - Acute myocardial infarction [Fatal]
  - Hypoglycaemia [Fatal]
